FAERS Safety Report 10260134 (Version 2)
Quarter: 2014Q3

REPORT INFORMATION
  Report Type: Spontaneous
  Country: US (occurrence: US)
  Receive Date: 20140625
  Receipt Date: 20140811
  Transmission Date: 20150326
  Serious: Yes (Other)
  Sender: FDA-Public Use
  Company Number: US-ABBVIE-14P-163-1250698-00

PATIENT
  Age: 65 Year
  Sex: Female
  Weight: 55.84 kg

DRUGS (4)
  1. INFLIXIMAB [Concomitant]
     Active Substance: INFLIXIMAB
     Indication: PRODUCT USED FOR UNKNOWN INDICATION
     Dates: start: 201212, end: 201403
  2. AZATHIOPRINE. [Concomitant]
     Active Substance: AZATHIOPRINE
     Indication: IMMUNOSUPPRESSANT DRUG THERAPY
     Dates: start: 201309, end: 201403
  3. CORTICOSTEROIDS [Concomitant]
     Active Substance: CORTICOSTEROID NOS
     Indication: CROHN^S DISEASE
     Dosage: DAILY DOSE VARIES, INTERMITTENT, DURING FLARES
  4. HUMIRA [Suspect]
     Active Substance: ADALIMUMAB
     Indication: CROHN^S DISEASE
     Dates: start: 20100512, end: 201212

REACTIONS (3)
  - Acute myeloid leukaemia [Recovering/Resolving]
  - Crohn^s disease [Recovered/Resolved]
  - Abdominal pain [Unknown]

NARRATIVE: CASE EVENT DATE: 20130814
